FAERS Safety Report 9290374 (Version 1)
Quarter: 2013Q2

REPORT INFORMATION
  Report Type: Spontaneous
  Country: US (occurrence: US)
  Receive Date: 20130515
  Receipt Date: 20130515
  Transmission Date: 20140414
  Serious: Yes (Other)
  Sender: FDA-Public Use
  Company Number: US-PFIZER INC-2013145938

PATIENT
  Sex: Female

DRUGS (1)
  1. LEVOXYL [Suspect]
     Dosage: 62.5 UG, UNK (HALF OF A 125 MCG TABLET)

REACTIONS (2)
  - Overdose [Unknown]
  - Hyperthyroidism [Unknown]
